FAERS Safety Report 9269933 (Version 2)
Quarter: 2013Q4

REPORT INFORMATION
  Report Type: Spontaneous
  Country: US (occurrence: US)
  Receive Date: 20130503
  Receipt Date: 20131004
  Transmission Date: 20140711
  Serious: No
  Sender: FDA-Public Use
  Company Number: US-PFIZER INC-2013135554

PATIENT
  Sex: Female

DRUGS (1)
  1. LEVOXYL [Suspect]
     Dosage: 137 UG, UNK

REACTIONS (3)
  - Drug intolerance [Unknown]
  - Fatigue [Unknown]
  - Drug ineffective [Unknown]
